FAERS Safety Report 26063030 (Version 1)
Quarter: 2025Q4

REPORT INFORMATION
  Report Type: Spontaneous
  Country: EU (occurrence: EU)
  Receive Date: 20251119
  Receipt Date: 20251119
  Transmission Date: 20260118
  Serious: Yes (Hospitalization, Other)
  Sender: AUROBINDO
  Company Number: EU-AFSSAPS-TS2025001130

PATIENT
  Age: 24 Year
  Sex: Male

DRUGS (6)
  1. DIAZEPAM [Suspect]
     Active Substance: DIAZEPAM
     Indication: Schizophrenia
     Dosage: 7 MILLIGRAM, EVERY 3 DAYS
  2. TOPIRAMATE [Suspect]
     Active Substance: TOPIRAMATE
     Indication: Mood swings
     Dosage: 25 MILLIGRAM, ONCE A DAY
     Dates: start: 20251017, end: 20251021
  3. LANSOPRAZOLE [Suspect]
     Active Substance: LANSOPRAZOLE
     Indication: Product used for unknown indication
     Dosage: 30 MILLIGRAM, ONCE A DAY
     Dates: start: 20251003
  4. TROPATEPINE [Suspect]
     Active Substance: TROPATEPINE
     Indication: Schizophrenia
     Dosage: 10 MILLIGRAM, TWO TIMES A DAY
     Dates: start: 20251004
  5. LEVOMEPROMAZINE [Suspect]
     Active Substance: LEVOMEPROMAZINE
     Indication: Schizophrenia
     Dosage: 25 MILLIGRAM, FOUR TIMES/DAY
     Dates: start: 20251003
  6. LOXAPINE [Suspect]
     Active Substance: LOXAPINE
     Indication: Schizophrenia
     Dosage: 50 MILLIGRAM, ONCE A DAY
     Dates: start: 20251003

REACTIONS (1)
  - Suicidal ideation [Not Recovered/Not Resolved]

NARRATIVE: CASE EVENT DATE: 20251020
